FAERS Safety Report 8015441-3 (Version None)
Quarter: 2011Q4

REPORT INFORMATION
  Report Type: 
  Country: None (occurrence: None)
  Receive Date: 20111230
  Receipt Date: 20111222
  Transmission Date: 20120403
  Serious: Yes (Hospitalization)
  Sender: FDA-Public Use
  Company Number: ES-BRISTOL-MYERS SQUIBB COMPANY-16312928

PATIENT
  Age: 77 Year
  Sex: Female

DRUGS (4)
  1. ENOXAPARIN SODIUM [Concomitant]
     Indication: VENOUS THROMBOSIS
     Route: 058
     Dates: start: 20090101, end: 20111203
  2. YERVOY [Suspect]
     Indication: MALIGNANT MELANOMA
     Dosage: 5MG/ML
     Route: 042
     Dates: start: 20111115
  3. DURAGESIC-100 [Concomitant]
     Indication: METASTATIC PAIN
     Dosage: DUROGESIC MATRIX 100UG
     Route: 048
     Dates: start: 20080101, end: 20111203
  4. LEVOTHYROXINE SODIUM [Concomitant]
     Indication: HYPOTHYROIDISM
     Route: 048
     Dates: start: 20080101, end: 20111203

REACTIONS (3)
  - THROMBOCYTOPENIA [None]
  - COMA [None]
  - CEREBRAL HAEMORRHAGE [None]
